FAERS Safety Report 12649358 (Version 1)
Quarter: 2016Q3

REPORT INFORMATION
  Report Type: Spontaneous
  Country: CZ (occurrence: CZ)
  Receive Date: 20160812
  Receipt Date: 20160812
  Transmission Date: 20161109
  Serious: Yes (Life-Threatening, Other)
  Sender: FDA-Public Use
  Company Number: CZ-MYLANLABS-2016M1032605

PATIENT

DRUGS (13)
  1. GODASAL [Concomitant]
     Active Substance: ASPIRIN\GLYCINE
     Dosage: UNK
  2. FURORESE                           /00032601/ [Concomitant]
     Dosage: UNK
  3. LORADUR [Concomitant]
     Dosage: UNK
  4. MOXONIDINUM [Concomitant]
     Dosage: UNK
  5. PRADAXA [Concomitant]
     Active Substance: DABIGATRAN ETEXILATE MESYLATE
     Dosage: UNK
  6. BOSENTANUM [Concomitant]
     Dosage: UNK
  7. VASOCARDIN [Concomitant]
     Active Substance: METOPROLOL
     Dosage: UNK
  8. APO-ALLOPURINOL [Concomitant]
     Active Substance: ALLOPURINOL
     Dosage: UNK
  9. RHINOCORT AQUA [Concomitant]
     Active Substance: BUDESONIDE
     Dosage: UNK
  10. MERTENIL [Concomitant]
     Dosage: UNK
  11. FAMOSAN [Concomitant]
     Dosage: UNK
  12. DOXAZOSIN [Suspect]
     Active Substance: DOXAZOSIN\DOXAZOSIN MESYLATE
     Indication: HYPERTENSION
     Dosage: 4 MG, QD
     Route: 048
     Dates: start: 20160624, end: 20160715
  13. ZOXON                              /00639301/ [Concomitant]
     Dosage: UNK

REACTIONS (1)
  - Cardiac failure congestive [Recovering/Resolving]

NARRATIVE: CASE EVENT DATE: 20160701
